FAERS Safety Report 5242320-7 (Version None)
Quarter: 2007Q1

REPORT INFORMATION
  Report Type: 
  Country: None (occurrence: None)
  Receive Date: 20070216
  Receipt Date: 20070216
  Transmission Date: 20070707
  Serious: Yes (Hospitalization)
  Sender: FDA-Public Use
  Company Number: None

PATIENT
  Age: 74 Year
  Sex: Male

DRUGS (7)
  1. METOPROLOL SUCCINATE EXTENDED RELEASE [Suspect]
     Indication: HYPERTENSION
     Dosage: 100 MG QD
     Dates: start: 20060203
  2. ALLOPURINOL SODIUM [Concomitant]
  3. LORAZEPAM [Concomitant]
  4. RANITIDINE [Concomitant]
  5. GUAIFENESIN [Concomitant]
  6. TRAMADOL HCL [Concomitant]
  7. ITRACONAZOLE [Concomitant]

REACTIONS (1)
  - BRADYCARDIA [None]
